FAERS Safety Report 24820036 (Version 1)
Quarter: 2025Q1

REPORT INFORMATION
  Report Type: Spontaneous
  Country: PR (occurrence: None)
  Receive Date: 20250108
  Receipt Date: 20250108
  Transmission Date: 20250408
  Serious: No
  Sender: FDA-CTU
  Company Number: None

PATIENT
  Age: 45 Year
  Sex: Female
  Weight: 105.2 kg

DRUGS (7)
  1. CORTICOTROPIN [Suspect]
     Active Substance: CORTICOTROPIN
     Indication: Multiple sclerosis
     Dosage: 5 ML DAILY SUBCUTANEOUS?
     Route: 058
     Dates: start: 20241230
  2. clonazePAM Oral Tablet 2 MG [Concomitant]
  3. Gilenya Oral Capsule 0.5 MG [Concomitant]
  4. Omega-3 1 GM [Concomitant]
  5. METOPROLOL SUCCINATE [Concomitant]
     Active Substance: METOPROLOL SUCCINATE
  6. Lisinopril Oral Tablet 10 MG [Concomitant]
  7. Atorvastatin Calcium Oral Tablet 20 mg [Concomitant]

REACTIONS (3)
  - Oedema peripheral [None]
  - Muscle spasms [None]
  - Hypoaesthesia [None]

NARRATIVE: CASE EVENT DATE: 20250103
